FAERS Safety Report 5563629-3 (Version None)
Quarter: 2007Q4

REPORT INFORMATION
  Report Type: 
  Country: None (occurrence: None)
  Receive Date: 20071217
  Receipt Date: 20071204
  Transmission Date: 20080405
  Serious: Yes (Other)
  Sender: FDA-Public Use
  Company Number: JP-ELI_LILLY_AND_COMPANY-JP200712001372

PATIENT
  Age: 66 Year
  Sex: Female

DRUGS (2)
  1. GEMZAR [Suspect]
     Indication: BILE DUCT CANCER
     Dosage: 1000 MG/M2, OTHER
     Route: 042
  2. CISPLATIN [Concomitant]
     Indication: BILE DUCT CANCER
     Dosage: 80 MG/M2, OTHER
     Route: 042

REACTIONS (1)
  - DEAFNESS [None]
